FAERS Safety Report 4743988-1 (Version None)
Quarter: 2005Q3

REPORT INFORMATION
  Report Type: 
  Country: None (occurrence: None)
  Receive Date: 20050809
  Receipt Date: 20050729
  Transmission Date: 20060218
  Serious: Yes (Hospitalization, Other)
  Sender: FDA-Public Use
  Company Number: 2005EU001738

PATIENT
  Age: 44 Year
  Sex: Male

DRUGS (2)
  1. PROGRAF [Suspect]
     Indication: HEART TRANSPLANT
  2. CELLCEPT [Suspect]
     Indication: HEART TRANSPLANT
     Dosage: 2.00 G ORAL
     Route: 048
     Dates: start: 20050517

REACTIONS (1)
  - HAEMOLYTIC ANAEMIA [None]
